FAERS Safety Report 16715864 (Version 9)
Quarter: 2020Q4

REPORT INFORMATION
  Report Type: Spontaneous
  Country: US (occurrence: US)
  Receive Date: 20190819
  Receipt Date: 20201015
  Transmission Date: 20210113
  Serious: Yes (Hospitalization, Other)
  Sender: FDA-Public Use
  Company Number: US-PFIZER INC-2019353062

PATIENT
  Age: 62 Year
  Sex: Female
  Weight: 77.1 kg

DRUGS (10)
  1. AMITRIPTYLINE [Concomitant]
     Active Substance: AMITRIPTYLINE
     Indication: HEADACHE
     Dosage: 25 MG, 1X/DAY
  2. GABAPENTIN. [Concomitant]
     Active Substance: GABAPENTIN
     Indication: NERVE INJURY
     Dosage: 300 MG, 2X/DAY
  3. LORAZEPAM. [Concomitant]
     Active Substance: LORAZEPAM
     Indication: SLEEP DISORDER
     Dosage: 1 MG, DAILY [EVERY NIGHT]
  4. CENTRUM WOMEN 50+ [Concomitant]
     Active Substance: VITAMINS
     Indication: VITAMIN SUPPLEMENTATION
     Dosage: 300 MG, 2X/DAY
     Dates: start: 2009
  5. VITAMIN B12 [Concomitant]
     Active Substance: CYANOCOBALAMIN
     Indication: VITAMIN SUPPLEMENTATION
     Dosage: 500 MG, DAILY
     Dates: start: 2009
  6. AMBIEN [Concomitant]
     Active Substance: ZOLPIDEM TARTRATE
     Indication: SLEEP DISORDER
     Dosage: UNK
  7. KEYTRUDA [Suspect]
     Active Substance: PEMBROLIZUMAB
     Indication: RENAL CANCER
     Dosage: UNK, EVERY 3 WEEKS
     Route: 042
     Dates: start: 20190523, end: 20191210
  8. FOLIC ACID. [Concomitant]
     Active Substance: FOLIC ACID
     Indication: GASTRIC BYPASS
     Dosage: 1000 UG, DAILY
     Dates: start: 2009
  9. MELOXICAM. [Concomitant]
     Active Substance: MELOXICAM
     Indication: ARTHRALGIA
     Dosage: 15 MG, 1X/DAY
  10. INLYTA [Suspect]
     Active Substance: AXITINIB
     Indication: RENAL CANCER
     Dosage: 5 MG, 2X/DAY
     Route: 048
     Dates: start: 201905, end: 201911

REACTIONS (28)
  - Discharge [Unknown]
  - Foot deformity [Unknown]
  - Illness [Unknown]
  - Tongue disorder [Unknown]
  - Anger [Unknown]
  - Blood pressure fluctuation [Unknown]
  - Fall [Unknown]
  - Adrenal gland injury [Unknown]
  - Mental disorder [Unknown]
  - Tongue discomfort [Not Recovered/Not Resolved]
  - Near death experience [Unknown]
  - Neoplasm progression [Unknown]
  - Infection [Unknown]
  - Drug hypersensitivity [Unknown]
  - Musculoskeletal chest pain [Unknown]
  - Feeding disorder [Unknown]
  - Loss of personal independence in daily activities [Unknown]
  - Peripheral swelling [Unknown]
  - Diarrhoea [Unknown]
  - Blood pressure decreased [Unknown]
  - Hunger [Unknown]
  - Loss of consciousness [Unknown]
  - Hypothalamo-pituitary disorder [Unknown]
  - Dizziness [Unknown]
  - Cortisol decreased [Unknown]
  - Pain in extremity [Unknown]
  - Neuropathy peripheral [Unknown]
  - Tooth extraction [Unknown]

NARRATIVE: CASE EVENT DATE: 201911
